FAERS Safety Report 7911631 (Version 2)
Quarter: 2012Q4

REPORT INFORMATION
  Report Type: 
  Country: US (occurrence: US)
  Receive Date: 20110422
  Receipt Date: 20121122
  Transmission Date: 20130627
  Serious: Yes (Hospitalization)
  Sender: FDA-Public Use
  Company Number: US-B.I. PHARMACEUTICALS,INC./RIDGEFIELD-2011-BP-11122BP

PATIENT
  Age: 81 Year
  Sex: Male

DRUGS (9)
  1. PRADAXA [Suspect]
     Indication: ATRIAL FIBRILLATION
     Dosage: 300 mg
     Route: 048
     Dates: start: 201012
  2. PRADAXA [Suspect]
     Dosage: 150 mg
     Route: 048
  3. DIGOXIN [Concomitant]
     Route: 048
  4. SIMVASTATIN [Concomitant]
     Indication: BLOOD CHOLESTEROL INCREASED
     Dosage: 40 mg
     Route: 048
  5. AVODART [Concomitant]
     Indication: BENIGN PROSTATIC HYPERPLASIA
     Dosage: 0.5 mg
     Route: 048
  6. AVODART [Concomitant]
     Indication: PROSTATOMEGALY
  7. LEVOTHYROID [Concomitant]
     Indication: HYPOTHYROIDISM
     Dosage: 88 mcg
     Route: 048
  8. DIOVAN [Concomitant]
     Indication: HYPERTENSION
     Dosage: 160 mg
     Route: 048
  9. LIPOFLAVINOID [Concomitant]
     Indication: VERTIGO

REACTIONS (7)
  - Blood urine present [Recovered/Resolved]
  - Urinary tract infection [Recovered/Resolved]
  - Dizziness [Not Recovered/Not Resolved]
  - Balance disorder [Not Recovered/Not Resolved]
  - Platelet count decreased [Not Recovered/Not Resolved]
  - Contusion [Not Recovered/Not Resolved]
  - Rash pruritic [Not Recovered/Not Resolved]
